FAERS Safety Report 6317008-1 (Version None)
Quarter: 2009Q3

REPORT INFORMATION
  Report Type: 
  Country: None (occurrence: None)
  Receive Date: 20090820
  Receipt Date: 20090810
  Transmission Date: 20100115
  Serious: Yes (Other)
  Sender: FDA-Public Use
  Company Number: US-PFIZER INC-2009253679

PATIENT
  Sex: Female

DRUGS (1)
  1. DEPO-SUBQ PROVERA 104 [Suspect]
     Indication: CONTRACEPTION

REACTIONS (2)
  - INAPPROPRIATE SCHEDULE OF DRUG ADMINISTRATION [None]
  - ORAL INFECTION [None]
